FAERS Safety Report 14777751 (Version 1)
Quarter: 2018Q2

REPORT INFORMATION
  Report Type: Spontaneous
  Country: RU (occurrence: RU)
  Receive Date: 20180419
  Receipt Date: 20180419
  Transmission Date: 20180711
  Serious: Yes (Other)
  Sender: FDA-Public Use
  Company Number: RU-ABBVIE-18P-251-2325779-00

PATIENT
  Age: 21 Year
  Sex: Male

DRUGS (2)
  1. DEPAKINE CHRONO [Suspect]
     Active Substance: VALPROATE SODIUM
     Indication: EPILEPSY
     Route: 048
  2. DEPAKINE CHRONO [Suspect]
     Active Substance: VALPROATE SODIUM
     Route: 048

REACTIONS (3)
  - Seizure [Recovered/Resolved]
  - Suspected counterfeit product [Unknown]
  - Muscle twitching [Recovered/Resolved]
